FAERS Safety Report 5892548-8 (Version None)
Quarter: 2008Q3

REPORT INFORMATION
  Report Type: 
  Country: None (occurrence: None)
  Receive Date: 20080923
  Receipt Date: 20080911
  Transmission Date: 20090109
  Serious: Yes (Hospitalization)
  Sender: FDA-Public Use
  Company Number: DE-ELI_LILLY_AND_COMPANY-DE200807004168

PATIENT
  Sex: Male
  Weight: 58 kg

DRUGS (4)
  1. ALIMTA [Suspect]
     Indication: NON-SMALL CELL LUNG CANCER
     Dosage: 500 MG, UNKNOWN
     Route: 042
     Dates: start: 20080619
  2. VITAMIN B-12 [Concomitant]
     Dosage: UNK, UNKNOWN
     Route: 030
  3. FOLIC ACID [Concomitant]
     Dosage: UNK, UNKNOWN
     Route: 048
  4. DECORTIN [Concomitant]
     Dosage: UNK, UNKNOWN
     Route: 065

REACTIONS (2)
  - EYE IRRITATION [None]
  - PHOTOPHOBIA [None]
